FAERS Safety Report 15907973 (Version 1)
Quarter: 2019Q1

REPORT INFORMATION
  Report Type: Spontaneous
  Country: CN (occurrence: CN)
  Receive Date: 20190204
  Receipt Date: 20190204
  Transmission Date: 20190417
  Serious: Yes (Life-Threatening)
  Sender: FDA-Public Use
  Company Number: CN-PFIZER INC-2019047195

PATIENT
  Age: 6 Month
  Sex: Male
  Weight: 8.5 kg

DRUGS (2)
  1. SOLU-MEDROL [Suspect]
     Active Substance: METHYLPREDNISOLONE SODIUM SUCCINATE
     Indication: PNEUMONIA
     Dosage: 8.5 MG, 2X/DAY
     Route: 041
     Dates: start: 20190123, end: 20190123
  2. GLUCOSE [Concomitant]
     Active Substance: DEXTROSE
     Dosage: 50 ML, UNK

REACTIONS (4)
  - Generalised erythema [Recovered/Resolved]
  - Drug eruption [Recovered/Resolved]
  - Urticaria [Recovered/Resolved]
  - Rash generalised [Recovered/Resolved]

NARRATIVE: CASE EVENT DATE: 20190123
